FAERS Safety Report 23510419 (Version 1)
Quarter: 2024Q1

REPORT INFORMATION
  Report Type: Spontaneous
  Country: US (occurrence: US)
  Receive Date: 20240211
  Receipt Date: 20240211
  Transmission Date: 20240410
  Serious: No
  Sender: FDA-Public Use
  Company Number: US-AMGEN-USASP2024027649

PATIENT
  Sex: Female

DRUGS (1)
  1. REPATHA [Suspect]
     Active Substance: EVOLOCUMAB
     Indication: Blood cholesterol increased
     Dosage: 140 MILLIGRAM
     Route: 065
     Dates: start: 202309, end: 202309

REACTIONS (3)
  - Pruritus [Unknown]
  - Muscle spasms [Unknown]
  - Erythema [Unknown]

NARRATIVE: CASE EVENT DATE: 20230901
